FAERS Safety Report 5358057-X (Version None)
Quarter: 2007Q2

REPORT INFORMATION
  Report Type: 
  Country: None (occurrence: None)
  Receive Date: 20070530
  Receipt Date: 20061018
  Transmission Date: 20071010
  Serious: Yes (Other)
  Sender: FDA-Public Use
  Company Number: US200606000846

PATIENT
  Age: 60 Year
  Sex: Male
  Weight: 85.7 kg

DRUGS (1)
  1. ZYPREXA [Suspect]
     Dosage: 5 MG
     Dates: start: 19970601, end: 20041201

REACTIONS (5)
  - DIABETES MELLITUS [None]
  - HYPERGLYCAEMIC HYPEROSMOLAR NONKETOTIC SYNDROME [None]
  - HYPERTENSION [None]
  - METABOLIC SYNDROME [None]
  - PANCREATITIS [None]
